FAERS Safety Report 16463502 (Version 1)
Quarter: 2019Q2

REPORT INFORMATION
  Report Type: Spontaneous
  Country: US (occurrence: US)
  Receive Date: 20190621
  Receipt Date: 20190621
  Transmission Date: 20190711
  Serious: Yes (Other)
  Sender: FDA-Public Use
  Company Number: US-SUNOVION-2019SUN002575

PATIENT

DRUGS (5)
  1. ATIVAN [Suspect]
     Active Substance: LORAZEPAM
  2. LITHIUM. [Suspect]
     Active Substance: LITHIUM
  3. LATUDA [Suspect]
     Active Substance: LURASIDONE HYDROCHLORIDE
     Route: 048
  4. LAMICTAL [Suspect]
     Active Substance: LAMOTRIGINE
  5. PROPANOL [Suspect]
     Active Substance: PROPRANOLOL HYDROCHLORIDE

REACTIONS (4)
  - Obsessive thoughts [Unknown]
  - Fear [Unknown]
  - Perseveration [Unknown]
  - Suicidal ideation [Unknown]
